FAERS Safety Report 19896029 (Version 1)
Quarter: 2021Q3

REPORT INFORMATION
  Report Type: Spontaneous
  Country: US (occurrence: US)
  Receive Date: 20210929
  Receipt Date: 20210929
  Transmission Date: 20211014
  Serious: Yes (Other)
  Sender: FDA-Public Use
  Company Number: US-HIKMA PHARMACEUTICALS USA INC.-US-H14001-21-04162

PATIENT
  Sex: Male

DRUGS (1)
  1. LEUCOVORIN. [Suspect]
     Active Substance: LEUCOVORIN
     Indication: EYE INFECTION TOXOPLASMAL
     Dosage: UNKNOWN
     Route: 065
     Dates: start: 2021

REACTIONS (7)
  - Paraesthesia [Unknown]
  - Condition aggravated [Unknown]
  - Visual impairment [Unknown]
  - Hyperaesthesia [Unknown]
  - Syncope [Unknown]
  - Headache [Unknown]
  - Occipital neuralgia [Unknown]
